FAERS Safety Report 8436350-1 (Version None)
Quarter: 2012Q2

REPORT INFORMATION
  Report Type: 
  Country: None (occurrence: None)
  Receive Date: 20120614
  Receipt Date: 20120604
  Transmission Date: 20120825
  Serious: No
  Sender: FDA-Public Use
  Company Number: US-ASTRAZENECA-2012SE16982

PATIENT
  Age: 61 Year
  Sex: Female
  Weight: 88.5 kg

DRUGS (4)
  1. SYMBICORT [Suspect]
     Dosage: 160/4.5 MCG, FREQUENCY AS REQUIRED
     Route: 055
  2. THRYROID MEDICATION [Concomitant]
     Indication: HYPOTHYROIDISM
  3. SYMBICORT [Suspect]
     Dosage: 2 PUFFS 160/4.5 MCG, FREQUENCY TWO TIMES DAY
     Route: 055
  4. HORMONE REPLACEMENT THERAPY [Concomitant]

REACTIONS (4)
  - SECRETION DISCHARGE [None]
  - OFF LABEL USE [None]
  - INFLUENZA [None]
  - CIRCUMSTANCE OR INFORMATION CAPABLE OF LEADING TO MEDICATION ERROR [None]
